FAERS Safety Report 11350533 (Version 1)
Quarter: 2015Q3

REPORT INFORMATION
  Report Type: Spontaneous
  Country: US (occurrence: None)
  Receive Date: 20150806
  Receipt Date: 20150806
  Transmission Date: 20151125
  Serious: Yes (Other)
  Sender: FDA-Public Use
  Company Number: None

PATIENT
  Age: 58 Year
  Sex: Female
  Weight: 65.77 kg

DRUGS (3)
  1. CPAP [Concomitant]
     Active Substance: DEVICE
  2. CALCIUM WITH VITAMIN D [Concomitant]
     Active Substance: CALCIUM\VITAMIN D
  3. IBANDRONATE [Suspect]
     Active Substance: IBANDRONATE SODIUM
     Indication: OSTEOPENIA
     Route: 048
     Dates: start: 20150803

REACTIONS (13)
  - Nausea [None]
  - Dyspnoea [None]
  - Back pain [None]
  - Abdominal pain upper [None]
  - Pain in extremity [None]
  - Arthralgia [None]
  - Pyrexia [None]
  - Musculoskeletal chest pain [None]
  - Headache [None]
  - Myalgia [None]
  - Diarrhoea [None]
  - Urticaria [None]
  - Influenza like illness [None]

NARRATIVE: CASE EVENT DATE: 20150803
